FAERS Safety Report 17109088 (Version 3)
Quarter: 2024Q3

REPORT INFORMATION
  Report Type: Report from Study
  Country: AT (occurrence: AT)
  Receive Date: 20191204
  Receipt Date: 20240923
  Transmission Date: 20241016
  Serious: No
  Sender: ROCHE
  Company Number: AT-ROCHE-2481138

PATIENT
  Age: 43 Year
  Sex: Female
  Weight: 65.0 kg

DRUGS (36)
  1. HERCEPTIN [Suspect]
     Active Substance: TRASTUZUMAB
     Indication: HER2 positive breast cancer
     Route: 042
     Dates: start: 20181107, end: 20200115
  2. HERCEPTIN [Suspect]
     Active Substance: TRASTUZUMAB
     Route: 042
     Dates: start: 20181016, end: 20181016
  3. PERJETA [Suspect]
     Active Substance: PERTUZUMAB
     Indication: HER2 positive breast cancer
     Route: 042
     Dates: start: 20181107, end: 20200115
  4. PERJETA [Suspect]
     Active Substance: PERTUZUMAB
     Route: 042
     Dates: start: 20181016, end: 20181016
  5. TAXOL [Suspect]
     Active Substance: PACLITAXEL
     Indication: HER2 positive breast cancer
     Route: 042
     Dates: start: 20181017, end: 20191016
  6. TAXOL [Suspect]
     Active Substance: PACLITAXEL
     Route: 042
     Dates: start: 20191023, end: 20200219
  7. NOVALGIN (AUSTRIA) [Concomitant]
     Dosage: ONGOING = CHECKED
     Dates: start: 20181023
  8. DIPHENHYDRAMINE HYDROCHLORIDE [Concomitant]
     Active Substance: DIPHENHYDRAMINE HYDROCHLORIDE
     Dosage: ONGOING = CHECKED
  9. DEXAMETHASONE [Concomitant]
     Active Substance: DEXAMETHASONE
     Dosage: ONGOING = CHECKED
     Dates: start: 20181017
  10. ZOFRAN [Concomitant]
     Active Substance: ONDANSETRON HYDROCHLORIDE
     Dosage: ONGOING = CHECKED
     Dates: start: 20181017
  11. RANITIDINE HYDROCHLORIDE [Concomitant]
     Active Substance: RANITIDINE HYDROCHLORIDE
     Dosage: ONGOING = CHECKED
     Dates: start: 20181017
  12. EMEND [Concomitant]
     Active Substance: APREPITANT
     Dosage: ONGOING = CHECKED
     Dates: start: 20181120
  13. ASTEC (AUSTRIA) [Concomitant]
     Dosage: ONGOING = CHECKED
     Dates: start: 20181023
  14. NEURONTIN [Concomitant]
     Active Substance: GABAPENTIN
     Dosage: ONGOING = CHECKED
     Dates: start: 20181023
  15. BUPRENORPHINE HYDROCHLORIDE [Concomitant]
     Active Substance: BUPRENORPHINE HYDROCHLORIDE
     Dosage: ONGOING = CHECKED
     Dates: start: 20181023
  16. PARACODIN [Concomitant]
     Dosage: ONGOING = CHECKED
     Dates: start: 20180715
  17. POLYETHYLENE GLYCOL 3350\POTASSIUM CHLORIDE\SODIUM BICARBONATE\SODIUM [Concomitant]
     Active Substance: POLYETHYLENE GLYCOL 3350\POTASSIUM CHLORIDE\SODIUM BICARBONATE\SODIUM CHLORIDE
     Dosage: ONGOING = CHECKED
     Dates: start: 20181023
  18. ZOFRAN [Concomitant]
     Active Substance: ONDANSETRON HYDROCHLORIDE
     Dosage: ONGOING = CHECKED
     Dates: start: 20181023
  19. PASPERTIN [Concomitant]
     Dosage: ONGOING = CHECKED
     Dates: start: 20181023
  20. BANEOCIN [Concomitant]
     Route: 061
     Dates: start: 20190108, end: 20190114
  21. DIPRODERM (AUSTRIA) [Concomitant]
  22. FUCIDIN [Concomitant]
     Active Substance: FUSIDATE SODIUM
     Route: 048
     Dates: start: 20181113, end: 20181120
  23. DALACIN [Concomitant]
  24. AMDINOCILLIN PIVOXIL [Concomitant]
     Active Substance: AMDINOCILLIN PIVOXIL
  25. HYDROMORPHONE HYDROCHLORIDE [Concomitant]
     Active Substance: HYDROMORPHONE HYDROCHLORIDE
  26. LACTULOSE [Concomitant]
     Active Substance: LACTULOSE
  27. CAPSAICIN [Concomitant]
     Active Substance: CAPSAICIN
  28. LEVETIRACETAM [Concomitant]
     Active Substance: LEVETIRACETAM
  29. DIPYRONE [Concomitant]
     Active Substance: DIPYRONE
  30. CANDESARTAN [Concomitant]
     Active Substance: CANDESARTAN
  31. PANTOPRAZOLE SODIUM [Concomitant]
     Active Substance: PANTOPRAZOLE SODIUM
  32. BUPRETEC [Concomitant]
  33. APREPITANT [Concomitant]
     Active Substance: APREPITANT
  34. ONDANSETRON [Concomitant]
     Active Substance: ONDANSETRON
  35. DEXAMETHASONE [Concomitant]
     Active Substance: DEXAMETHASONE
  36. XGEVA [Concomitant]
     Active Substance: DENOSUMAB
     Indication: Metastases to bone
     Route: 058
     Dates: start: 20190326

REACTIONS (1)
  - Erysipelas [Recovered/Resolved]

NARRATIVE: CASE EVENT DATE: 20190925
